FAERS Safety Report 6103463-9 (Version None)
Quarter: 2009Q1

REPORT INFORMATION
  Report Type: 
  Country: None (occurrence: None)
  Receive Date: 20090305
  Receipt Date: 20090227
  Transmission Date: 20090719
  Serious: Yes (Life-Threatening, Other)
  Sender: FDA-Public Use
  Company Number: PHHY2009ZA05681

PATIENT
  Age: 51 Year
  Sex: Male
  Weight: 83 kg

DRUGS (6)
  1. CERTICAN [Suspect]
     Indication: LUNG TRANSPLANT
     Dosage: 0.75 MG DAILY
     Route: 048
     Dates: start: 20090101, end: 20090201
  2. CYCLOSPORINE [Suspect]
     Indication: LUNG TRANSPLANT
     Dosage: 50 MG, UNK
  3. CELLCEPT [Concomitant]
     Dosage: 250 MG/DAY
  4. NEXIUM [Concomitant]
     Dosage: UNK
  5. PREDNISONE [Concomitant]
     Dosage: UNK
  6. IMOVANE [Concomitant]

REACTIONS (3)
  - OEDEMA [None]
  - PERICARDIAL EFFUSION [None]
  - PERICARDITIS CONSTRICTIVE [None]
